FAERS Safety Report 4726370-2 (Version None)
Quarter: 2005Q3

REPORT INFORMATION
  Report Type: 
  Country: None (occurrence: None)
  Receive Date: 20050727
  Receipt Date: 20050621
  Transmission Date: 20060218
  Serious: Yes (Other)
  Sender: FDA-Public Use
  Company Number: 2005073372

PATIENT
  Age: 59 Year
  Sex: Female
  Weight: 70 kg

DRUGS (7)
  1. LISTERINE (MENTHOL, METHYL SALICYLATE, EUCALYPTOL, THYMOL) [Suspect]
     Dosage: UNSPECIFIED, ORAL TOPICAL
     Route: 061
     Dates: start: 20050414
  2. ENALAPRIL MALEATE [Concomitant]
  3. ISOSORBIDE MONONITRATE [Concomitant]
  4. METOPROLOL TARTRATE [Concomitant]
  5. ASPIRIN [Concomitant]
  6. FERROUS FUMARATE [Concomitant]
  7. SIMVASTATIN [Concomitant]

REACTIONS (5)
  - BURNING SENSATION MUCOSAL [None]
  - GLOSSODYNIA [None]
  - HYPOAESTHESIA ORAL [None]
  - ORAL DISCOMFORT [None]
  - SWELLING FACE [None]
